FAERS Safety Report 18658253 (Version 1)
Quarter: 2020Q4

REPORT INFORMATION
  Report Type: Spontaneous
  Country: US (occurrence: US)
  Receive Date: 20201224
  Receipt Date: 20201224
  Transmission Date: 20210114
  Serious: Yes (Hospitalization, Other)
  Sender: FDA-Public Use
  Company Number: US-SA-2020SA367573

PATIENT

DRUGS (1)
  1. ZANTAC [Suspect]
     Active Substance: RANITIDINE HYDROCHLORIDE

REACTIONS (5)
  - Breast cancer stage III [Unknown]
  - Sepsis [Unknown]
  - Duodenal polyp [Unknown]
  - Neuroendocrine tumour [Unknown]
  - Salivary gland neoplasm [Unknown]
